FAERS Safety Report 4666567-3 (Version None)
Quarter: 2005Q2

REPORT INFORMATION
  Report Type: 
  Country: None (occurrence: None)
  Receive Date: 20050517
  Receipt Date: 20050428
  Transmission Date: 20051028
  Serious: Yes (Other)
  Sender: FDA-Public Use
  Company Number: USA050392045

PATIENT
  Age: 84 Year
  Sex: Female

DRUGS (7)
  1. ALIMTA [Suspect]
     Indication: NON-SMALL CELL LUNG CANCER STAGE IV
     Dosage: 1000 MG OTHER
     Route: 050
     Dates: start: 20050118
  2. GEMZAR [Suspect]
     Indication: NON-SMALL CELL LUNG CANCER STAGE IV
     Dates: start: 20020901, end: 20021201
  3. FOLIC ACID [Concomitant]
  4. VITAMIN B-12 [Concomitant]
  5. DECADRON [Concomitant]
  6. ARANESP [Concomitant]
  7. LEVOXYL [Concomitant]

REACTIONS (5)
  - ANAEMIA [None]
  - DISEASE PROGRESSION [None]
  - DRUG INTOLERANCE [None]
  - THROMBOCYTHAEMIA [None]
  - THROMBOCYTOPENIA [None]
